FAERS Safety Report 8815261 (Version 1)
Quarter: 2012Q4

REPORT INFORMATION
  Report Type: 
  Country: US (occurrence: US)
  Receive Date: 20120928
  Receipt Date: 20120928
  Transmission Date: 20130627
  Serious: Yes (Death, Hospitalization, Other)
  Sender: FDA-Public Use
  Company Number: US-ROXANE LABORATORIES, INC.-2012-EU-04881GD

PATIENT
  Age: 5 Year
  Sex: Male

DRUGS (4)
  1. SERTRALINE [Suspect]
     Route: 048
  2. CLOZAPINE [Suspect]
     Dosage: 3 anz
     Route: 048
  3. THIORIDAZINE [Suspect]
     Dosage: 1 anz
     Route: 048
  4. ACETAMINOPHEN/HYDROCODONE [Suspect]
     Route: 048

REACTIONS (8)
  - Death [Fatal]
  - Unresponsive to stimuli [Unknown]
  - Vomiting [Unknown]
  - Brain injury [Unknown]
  - Tachycardia [Unknown]
  - Convulsion [Unknown]
  - Respiratory arrest [None]
  - Cardiac arrest [None]
